FAERS Safety Report 6309948-4 (Version None)
Quarter: 2009Q3

REPORT INFORMATION
  Report Type: 
  Country: None (occurrence: None)
  Receive Date: 20090814
  Receipt Date: 20090722
  Transmission Date: 20100115
  Serious: Yes (Other)
  Sender: FDA-Public Use
  Company Number: B0588582A

PATIENT
  Sex: Female

DRUGS (2)
  1. RANITIDINE HCL [Suspect]
     Dosage: 300MG IN THE MORNING
     Route: 065
  2. UNKNOWN MEDICATION [Concomitant]

REACTIONS (1)
  - OEDEMA PERIPHERAL [None]
